FAERS Safety Report 12618230 (Version 2)
Quarter: 2016Q3

REPORT INFORMATION
  Report Type: Report from Study
  Country: US (occurrence: US)
  Receive Date: 20160803
  Receipt Date: 20160803
  Transmission Date: 20161109
  Serious: Yes (Other)
  Sender: FDA-Public Use
  Company Number: US-BAYER-2016-112611

PATIENT
  Age: 77 Year
  Sex: Male

DRUGS (3)
  1. STIVARGA [Suspect]
     Active Substance: REGORAFENIB
     Indication: COLON CANCER
     Dosage: 160 MG, QD 21 ON 7 OFF
     Route: 048
     Dates: start: 20160601, end: 201606
  2. METFORMIN [Concomitant]
     Active Substance: METFORMIN HYDROCHLORIDE
     Dosage: 750 MG, UNK
  3. STIVARGA [Suspect]
     Active Substance: REGORAFENIB
     Indication: COLON CANCER
     Dosage: 160 MG, QD 21 ON 7 OFF
     Route: 048

REACTIONS (12)
  - Nausea [Recovering/Resolving]
  - Night sweats [Recovered/Resolved]
  - Loss of consciousness [None]
  - Hyperhidrosis [None]
  - Malaise [Unknown]
  - Abdominal pain upper [Recovered/Resolved]
  - Blood glucose increased [Not Recovered/Not Resolved]
  - Asthenia [Not Recovered/Not Resolved]
  - Fall [None]
  - Disorientation [Recovered/Resolved]
  - Fatigue [Not Recovered/Not Resolved]
  - Abnormal loss of weight [Recovered/Resolved]

NARRATIVE: CASE EVENT DATE: 201606
